FAERS Safety Report 11414112 (Version 2)
Quarter: 2015Q3

REPORT INFORMATION
  Report Type: Spontaneous
  Country: DE (occurrence: DE)
  Receive Date: 20150824
  Receipt Date: 20150918
  Transmission Date: 20151125
  Serious: Yes (Life-Threatening, Other)
  Sender: FDA-Public Use
  Company Number: DE-MYLANLABS-2015M1028202

PATIENT

DRUGS (3)
  1. AERIUS [Concomitant]
     Active Substance: DESLORATADINE
     Dosage: 10 MG, UNK
  2. INFECTODEXAKRUPP [Concomitant]
     Indication: HYPERSENSITIVITY
     Dosage: 20 ML, UNK
  3. FASTJEKT [Suspect]
     Active Substance: EPINEPHRINE
     Indication: FOOD ALLERGY
     Dosage: 150 ?G, QD
     Route: 030
     Dates: start: 20150715, end: 20150715

REACTIONS (2)
  - Device malfunction [Recovered/Resolved]
  - Device failure [Recovered/Resolved]

NARRATIVE: CASE EVENT DATE: 20150715
